FAERS Safety Report 8267755-X (Version None)
Quarter: 2012Q2

REPORT INFORMATION
  Report Type: 
  Country: None (occurrence: None)
  Receive Date: 20120409
  Receipt Date: 20120403
  Transmission Date: 20120825
  Serious: Yes (Death)
  Sender: FDA-Public Use
  Company Number: GB-JNJFOC-20120403303

PATIENT

DRUGS (8)
  1. DACARBAZINE [Suspect]
     Indication: HODGKIN'S DISEASE
     Route: 042
  2. PREDNISOLONE [Suspect]
     Indication: HODGKIN'S DISEASE
     Route: 048
  3. PROCARBAZINE HYDROCHLORIDE [Suspect]
     Indication: HODGKIN'S DISEASE
     Route: 048
  4. DOXORUBICIN HCL [Suspect]
     Indication: HODGKIN'S DISEASE
     Route: 042
  5. BLEOMYCIN SULFATE [Suspect]
     Indication: HODGKIN'S DISEASE
     Route: 042
  6. VINCRISTINE [Suspect]
     Indication: HODGKIN'S DISEASE
     Route: 042
  7. CHLORAMBUCIL [Suspect]
     Indication: HODGKIN'S DISEASE
     Route: 048
  8. VINBLASTINE SULFATE [Suspect]
     Indication: HODGKIN'S DISEASE
     Route: 042

REACTIONS (1)
  - RECTAL CANCER [None]
